FAERS Safety Report 5095243-0 (Version None)
Quarter: 2006Q3

REPORT INFORMATION
  Report Type: 
  Country: None (occurrence: None)
  Receive Date: 20060901
  Receipt Date: 20060822
  Transmission Date: 20061208
  Serious: Yes (Other)
  Sender: FDA-Public Use
  Company Number: PHBS2006NL12608

PATIENT
  Age: 36 Year
  Sex: Male

DRUGS (3)
  1. LEPONEX [Suspect]
     Dosage: 200 MG/D
     Route: 048
  2. CLOZAPINE [Suspect]
     Dosage: 50 MG/D
     Route: 048
  3. SEPTANEST [Suspect]
     Dosage: 40 MG/D
     Route: 065

REACTIONS (1)
  - COMA [None]
